FAERS Safety Report 7452081-9 (Version None)
Quarter: 2011Q2

REPORT INFORMATION
  Report Type: 
  Country: None (occurrence: None)
  Receive Date: 20110502
  Receipt Date: 20110425
  Transmission Date: 20111010
  Serious: Yes (Hospitalization, Other)
  Sender: FDA-Public Use
  Company Number: US-ELI_LILLY_AND_COMPANY-US201103002709

PATIENT
  Sex: Male
  Weight: 113.38 kg

DRUGS (2)
  1. LANTUS [Concomitant]
     Dosage: UNK, UNKNOWN
  2. HUMALOG [Suspect]
     Dosage: 35 U, UNKNOWN

REACTIONS (2)
  - BLOOD GLUCOSE DECREASED [None]
  - WRONG DRUG ADMINISTERED [None]
